FAERS Safety Report 8697115 (Version 2)
Quarter: 2012Q4

REPORT INFORMATION
  Report Type: 
  Country: JP (occurrence: JP)
  Receive Date: 20120801
  Receipt Date: 20121019
  Transmission Date: 20130627
  Serious: Yes (Hospitalization)
  Sender: FDA-Public Use
  Company Number: JP-BAYER-2012-074715

PATIENT
  Age: 73 Year
  Sex: Female

DRUGS (3)
  1. ACETYLSALICYLIC ACID({=100 MG) [Suspect]
     Route: 048
  2. PREDNISOLONE [Suspect]
     Route: 048
  3. WARFARIN POTASSIUM [Suspect]
     Route: 048

REACTIONS (2)
  - Duodenal vascular ectasia [Recovering/Resolving]
  - Small intestinal haemorrhage [Recovering/Resolving]
